FAERS Safety Report 5642886-9 (Version None)
Quarter: 2008Q1

REPORT INFORMATION
  Report Type: 
  Country: None (occurrence: None)
  Receive Date: 20080226
  Receipt Date: 20080206
  Transmission Date: 20080703
  Serious: Yes (Death, Hospitalization)
  Sender: FDA-Public Use
  Company Number: 2008S1002487

PATIENT
  Age: 13 Year
  Sex: Female

DRUGS (1)
  1. ACYCLOVIR [Suspect]
     Indication: HERPES ZOSTER
     Dosage: 1000 MG; 4 TIMES A DAY ORAL
     Route: 048

REACTIONS (12)
  - ASPERGILLOSIS [None]
  - CANDIDIASIS [None]
  - CHOLESTASIS [None]
  - DISSEMINATED INTRAVASCULAR COAGULATION [None]
  - DRUG INEFFECTIVE [None]
  - HEPATIC FIBROSIS [None]
  - HEPATIC NECROSIS [None]
  - HERPES ZOSTER [None]
  - HISTIOCYTOSIS HAEMATOPHAGIC [None]
  - MULTI-ORGAN FAILURE [None]
  - PLEURAL EFFUSION [None]
  - SYSTEMIC MYCOSIS [None]
